FAERS Safety Report 24755421 (Version 2)
Quarter: 2025Q1

REPORT INFORMATION
  Report Type: Spontaneous
  Country: CN (occurrence: CN)
  Receive Date: 20241219
  Receipt Date: 20250102
  Transmission Date: 20250409
  Serious: Yes (Other)
  Sender: PFIZER
  Company Number: CN-PFIZER INC-PV202400163775

PATIENT
  Age: 48 Year
  Sex: Female

DRUGS (2)
  1. EPIRUBICIN HYDROCHLORIDE [Suspect]
     Active Substance: EPIRUBICIN HYDROCHLORIDE
     Indication: Breast cancer
     Dosage: 130 MG, 1X/DAY
     Route: 041
     Dates: start: 20240827, end: 20240827
  2. CYCLOPHOSPHAMIDE [Concomitant]
     Active Substance: CYCLOPHOSPHAMIDE
     Indication: Breast cancer
     Dosage: 0.95 G, 1X/DAY
     Route: 041
     Dates: start: 20240827, end: 20240827

REACTIONS (2)
  - Chest discomfort [Recovering/Resolving]
  - Cardiotoxicity [Unknown]

NARRATIVE: CASE EVENT DATE: 20240828
